FAERS Safety Report 23736672 (Version 3)
Quarter: 2024Q2

REPORT INFORMATION
  Report Type: Spontaneous
  Country: US (occurrence: US)
  Receive Date: 20240412
  Receipt Date: 20240531
  Transmission Date: 20240716
  Serious: No
  Sender: FDA-Public Use
  Company Number: US-VERTEX PHARMACEUTICALS-2024-006259

PATIENT
  Age: 42 Year
  Sex: Female

DRUGS (1)
  1. TRIKAFTA [Suspect]
     Active Substance: ELEXACAFTOR\IVACAFTOR\TEZACAFTOR
     Indication: Cystic fibrosis
     Dosage: FULL DOSE
     Route: 048

REACTIONS (7)
  - Cystic fibrosis [Unknown]
  - Product physical issue [Unknown]
  - Rash [Unknown]
  - Drug ineffective [Unknown]
  - Brain fog [Unknown]
  - Product quality issue [Unknown]
  - Productive cough [Unknown]

NARRATIVE: CASE EVENT DATE: 20240301
